FAERS Safety Report 9905869 (Version 3)
Quarter: 2014Q2

REPORT INFORMATION
  Report Type: Spontaneous
  Country: JP (occurrence: JP)
  Receive Date: 20140218
  Receipt Date: 20140609
  Transmission Date: 20141212
  Serious: Yes (Other)
  Sender: FDA-Public Use
  Company Number: JP-GE HEALTHCARE MEDICAL DIAGNOSTICS-OMPQ-PR-1402S-0145

PATIENT
  Age: 57 Year
  Sex: Male
  Weight: 64 kg

DRUGS (6)
  1. OMNIPAQUE [Suspect]
     Indication: INVESTIGATION
     Route: 042
     Dates: start: 20140206, end: 20140206
  2. OMNIPAQUE [Suspect]
     Indication: DIAGNOSTIC PROCEDURE
  3. ALDACTONE-A [Concomitant]
     Dates: start: 20131031
  4. GASTER D [Concomitant]
     Dates: start: 20131031
  5. WARFARIN [Concomitant]
     Dates: start: 20131031
  6. ALEVIATIN [Concomitant]
     Route: 048
     Dates: start: 20131031

REACTIONS (1)
  - Anaphylactic shock [Recovered/Resolved]
